FAERS Safety Report 6434483-2 (Version None)
Quarter: 2009Q4

REPORT INFORMATION
  Report Type: 
  Country: None (occurrence: None)
  Receive Date: 20091110
  Receipt Date: 20091029
  Transmission Date: 20100525
  Serious: Yes (Other)
  Sender: FDA-Public Use
  Company Number: DE-PFIZER INC-2009284059

PATIENT
  Age: 49 Year
  Sex: Female
  Weight: 60 kg

DRUGS (4)
  1. LYRICA [Suspect]
     Indication: RADICULAR SYNDROME
     Dosage: 75 MG, 2X/DAY
     Route: 048
     Dates: start: 20090120, end: 20090201
  2. LYRICA [Suspect]
     Indication: NEURALGIA
  3. TRAMADOL HCL [Concomitant]
     Dosage: UNK
  4. IBUPROFEN [Concomitant]
     Dosage: UNK

REACTIONS (2)
  - EMBOLISM [None]
  - VISUAL ACUITY REDUCED [None]
